FAERS Safety Report 9385723 (Version 2)
Quarter: 2013Q3

REPORT INFORMATION
  Report Type: Spontaneous
  Country: US (occurrence: US)
  Receive Date: 20130705
  Receipt Date: 20130801
  Transmission Date: 20140515
  Serious: Yes (Hospitalization, Other)
  Sender: FDA-Public Use
  Company Number: US-B.I. PHARMACEUTICALS,INC./RIDGEFIELD-2013-BI-18913BP

PATIENT
  Age: 81 Year
  Sex: Female
  Weight: 76.2 kg

DRUGS (4)
  1. PRADAXA [Suspect]
     Indication: ANTICOAGULANT THERAPY
     Dosage: 300 MG
     Route: 048
     Dates: start: 20110531, end: 20110630
  2. PRADAXA [Suspect]
     Indication: ATRIAL FIBRILLATION
  3. PROTONIX [Concomitant]
     Route: 048
  4. VERAPAMIL HCL [Concomitant]
     Dosage: 240 MG
     Route: 048

REACTIONS (3)
  - Gastrointestinal haemorrhage [Recovered/Resolved]
  - Haemorrhagic anaemia [Unknown]
  - Transient ischaemic attack [Unknown]
